FAERS Safety Report 9904848 (Version 1)
Quarter: 2014Q1

REPORT INFORMATION
  Report Type: Spontaneous
  Country: BR (occurrence: BR)
  Receive Date: 20140218
  Receipt Date: 20140218
  Transmission Date: 20141002
  Serious: Yes (Other)
  Sender: FDA-Public Use
  Company Number: BR-ASTRAZENECA-2014SE09824

PATIENT
  Age: 578 Month
  Sex: Female
  Weight: 71 kg

DRUGS (4)
  1. ATACAND [Suspect]
     Indication: HYPERTENSION
     Route: 048
     Dates: start: 2007, end: 20140115
  2. ATACAND HCT [Suspect]
     Indication: HYPERTENSION
     Dosage: 16 MG/12.5 MG, DAILY
     Route: 048
     Dates: start: 20140116
  3. SELOZOK [Suspect]
     Indication: HYPERTENSION
     Route: 048
     Dates: start: 2007
  4. HYDROCHLOROTHIAZIDE (NON AZ PRODUCT) [Suspect]
     Indication: HYPERTENSION
     Route: 048
     Dates: start: 2007, end: 20140115

REACTIONS (3)
  - Blood pressure increased [Recovering/Resolving]
  - Asthenia [Recovered/Resolved]
  - Drug ineffective [Unknown]
